FAERS Safety Report 10399551 (Version 1)
Quarter: 2014Q3

REPORT INFORMATION
  Report Type: Spontaneous
  Country: US (occurrence: None)
  Receive Date: 20140818
  Receipt Date: 20140818
  Transmission Date: 20150326
  Serious: Yes (Life-Threatening, Hospitalization)
  Sender: FDA-Public Use
  Company Number: None

PATIENT
  Age: 62 Year
  Sex: Female
  Weight: 56.7 kg

DRUGS (1)
  1. OXYCODONE/ACETAMINOPHEN [Suspect]
     Active Substance: ACETAMINOPHEN\OXYCODONE\OXYCODONE HYDROCHLORIDE
     Indication: PROCEDURAL PAIN
     Dosage: 1-2 TABLET EVERY 6 HOURS FOUR TIMES DAILY TAKEN BY MOUTH
     Route: 048
     Dates: start: 20140801, end: 20140801

REACTIONS (8)
  - Syncope [None]
  - Dyspnoea [None]
  - Urine output decreased [None]
  - Head injury [None]
  - Dehydration [None]
  - Wrong technique in drug usage process [None]
  - Pruritus [None]
  - Hyperhidrosis [None]

NARRATIVE: CASE EVENT DATE: 20140801
